FAERS Safety Report 4668988-1 (Version None)
Quarter: 2005Q2

REPORT INFORMATION
  Report Type: 
  Country: None (occurrence: None)
  Receive Date: 20050523
  Receipt Date: 20050512
  Transmission Date: 20051028
  Serious: Yes (Hospitalization)
  Sender: FDA-Public Use
  Company Number: CH-GLAXOSMITHKLINE-B0381643A

PATIENT
  Age: 65 Year
  Sex: Male

DRUGS (18)
  1. FRAXIPARINE [Suspect]
     Indication: DRUG USE FOR UNKNOWN INDICATION
     Dosage: 1U PER DAY
     Route: 058
     Dates: end: 20050221
  2. AVANDIA [Suspect]
     Dosage: 4MG UNKNOWN
     Route: 048
     Dates: end: 20050228
  3. FUROSEMIDE [Suspect]
     Indication: ESSENTIAL HYPERTENSION
     Dosage: 40MG SEE DOSAGE TEXT
     Route: 048
     Dates: end: 20050228
  4. PANTOPRAZOLE SODIUM [Suspect]
     Indication: DRUG USE FOR UNKNOWN INDICATION
     Dosage: 40MG PER DAY
     Route: 048
     Dates: end: 20050228
  5. PARACETAMOL [Suspect]
     Indication: DRUG USE FOR UNKNOWN INDICATION
     Dosage: 2TAB FOUR TIMES PER DAY
     Route: 048
     Dates: start: 20050216, end: 20050228
  6. CIPROFLOXACIN HYDROCHLORIDE [Suspect]
     Dosage: 1TAB PER DAY
     Route: 048
     Dates: start: 20050216, end: 20050217
  7. METRONIDAZOLE [Suspect]
     Dosage: 500MG PER DAY
     Route: 048
     Dates: start: 20050216, end: 20050226
  8. PIPAMPERONE HYDROCHLORIDE [Suspect]
     Indication: DRUG USE FOR UNKNOWN INDICATION
     Dosage: .5U PER DAY
     Route: 048
     Dates: start: 20050221, end: 20050228
  9. CIPROFLOXACIN [Suspect]
     Dosage: 500MG PER DAY
     Route: 048
     Dates: start: 20050218, end: 20050226
  10. LEVOCETIRIZINE HYDROCHLORIDE [Suspect]
     Indication: DRUG USE FOR UNKNOWN INDICATION
     Dosage: 1U PER DAY
     Route: 048
     Dates: start: 20050218, end: 20050228
  11. DIMETINDENE MALEATE [Suspect]
     Indication: DRUG USE FOR UNKNOWN INDICATION
     Dosage: 4MG PER DAY
     Route: 048
     Dates: start: 20050221, end: 20050228
  12. METOCLOPRAMIDE HYDROCHLORIDE [Suspect]
     Indication: DRUG USE FOR UNKNOWN INDICATION
     Dosage: 15DROP THREE TIMES PER DAY
     Route: 048
     Dates: start: 20050221, end: 20050228
  13. TRAMADOL HCL [Suspect]
     Indication: DRUG USE FOR UNKNOWN INDICATION
     Dosage: 20DROP PER DAY
     Route: 048
     Dates: start: 20050217, end: 20050223
  14. LEVOTHYROXINE SODIUM [Concomitant]
     Indication: HYPERTHYROIDISM
     Dosage: .075MG PER DAY
     Route: 048
  15. MAGNESIUM ASPARTATE HYDROCHLORIDE [Concomitant]
     Dosage: 1.23G THREE TIMES PER DAY
     Route: 048
  16. TORSEMIDE [Concomitant]
     Indication: ESSENTIAL HYPERTENSION
     Dosage: .5TAB PER DAY
     Route: 048
  17. LORMETAZEPAM [Concomitant]
     Dosage: 2U PER DAY
     Route: 048
  18. METFORMIN HCL [Concomitant]
     Dosage: 850MG PER DAY
     Route: 048

REACTIONS (8)
  - ALANINE AMINOTRANSFERASE INCREASED [None]
  - ASPARTATE AMINOTRANSFERASE INCREASED [None]
  - BLOOD ALKALINE PHOSPHATASE INCREASED [None]
  - BLOOD BILIRUBIN INCREASED [None]
  - C-REACTIVE PROTEIN INCREASED [None]
  - CHOLESTASIS [None]
  - GAMMA-GLUTAMYLTRANSFERASE INCREASED [None]
  - JAUNDICE [None]
